FAERS Safety Report 8504831-8 (Version None)
Quarter: 2012Q3

REPORT INFORMATION
  Report Type: 
  Country: None (occurrence: None)
  Receive Date: 20120712
  Receipt Date: 20120628
  Transmission Date: 20120928
  Serious: Yes (Other)
  Sender: FDA-Public Use
  Company Number: US-RB-041821-12

PATIENT
  Age: 62 Year
  Sex: Male

DRUGS (5)
  1. MICARDITIS [Concomitant]
     Indication: PRODUCT USED FOR UNKNOWN INDICATION
  2. TOPROL-XL [Concomitant]
     Indication: PRODUCT USED FOR UNKNOWN INDICATION
  3. HYDROCHLORTHIAZIDE [Concomitant]
     Indication: PRODUCT USED FOR UNKNOWN INDICATION
  4. TIKOSYN [Concomitant]
     Indication: PRODUCT USED FOR UNKNOWN INDICATION
  5. MUCINEX DM [Suspect]
     Indication: PRODUCT USED FOR UNKNOWN INDICATION
     Dosage: TOOK 2 TABLETS TOTAL
     Route: 048

REACTIONS (1)
  - TACHYCARDIA [None]
